FAERS Safety Report 20723478 (Version 25)
Quarter: 2024Q3

REPORT INFORMATION
  Report Type: Spontaneous
  Country: CA (occurrence: CA)
  Receive Date: 20220419
  Receipt Date: 20240907
  Transmission Date: 20241016
  Serious: Yes (Other)
  Sender: CELLTRION
  Company Number: CA-CELLTRION INC.-2021CA016843

PATIENT

DRUGS (31)
  1. INFLECTRA [Suspect]
     Active Substance: INFLIXIMAB-DYYB
     Indication: Crohn^s disease
     Dosage: 300 MG AT 0, 2, 6, WEEKS THEN EVERY 8 WEEKS
     Route: 042
     Dates: start: 20210916
  2. INFLECTRA [Suspect]
     Active Substance: INFLIXIMAB-DYYB
     Dosage: 300 MG AT 0, 2, 6, WEEKS THEN EVERY 8 WEEKS
     Route: 042
     Dates: start: 20211101
  3. INFLECTRA [Suspect]
     Active Substance: INFLIXIMAB-DYYB
     Dosage: 300 MG AT 0, 2, 6, WEEKS THEN EVERY 8 WEEKS
     Route: 042
     Dates: start: 20211230
  4. INFLECTRA [Suspect]
     Active Substance: INFLIXIMAB-DYYB
     Dosage: 700 MG, RESCUE DOSE
     Route: 042
     Dates: start: 20220201, end: 20220201
  5. INFLECTRA [Suspect]
     Active Substance: INFLIXIMAB-DYYB
     Dosage: 700 MG, EVERY 8 WEEKS
     Route: 042
     Dates: start: 20220330, end: 20220524
  6. INFLECTRA [Suspect]
     Active Substance: INFLIXIMAB-DYYB
     Dosage: 700 MG, EVERY 8 WEEKS
     Route: 042
     Dates: start: 20220524
  7. INFLECTRA [Suspect]
     Active Substance: INFLIXIMAB-DYYB
     Dosage: 15 MG/KG (1000MG), EVERY 6 WEEKS
     Route: 042
     Dates: start: 20220708
  8. INFLECTRA [Suspect]
     Active Substance: INFLIXIMAB-DYYB
     Dosage: 15 MG/KG (1000MG), EVERY 6 WEEKS
     Route: 042
     Dates: start: 20220819
  9. INFLECTRA [Suspect]
     Active Substance: INFLIXIMAB-DYYB
     Dosage: 15 MG/KG (1000MG), EVERY 6 WEEKS (1000MG)
     Route: 042
     Dates: start: 20220929
  10. INFLECTRA [Suspect]
     Active Substance: INFLIXIMAB-DYYB
     Dosage: 15 MG/KG (1000MG), EVERY 6 WEEKS (1000MG)
     Route: 042
     Dates: start: 20221111
  11. INFLECTRA [Suspect]
     Active Substance: INFLIXIMAB-DYYB
     Dosage: 15 MG/KG (1000MG), EVERY 6 WEEKS (1000MG)
     Route: 042
     Dates: start: 20221222
  12. INFLECTRA [Suspect]
     Active Substance: INFLIXIMAB-DYYB
     Dosage: 15 MG/KG (1000MG), EVERY 6 WEEKS (1000MG)
     Route: 042
     Dates: start: 20230202
  13. INFLECTRA [Suspect]
     Active Substance: INFLIXIMAB-DYYB
     Dosage: 15 MG/KG (1000MG), EVERY 6 WEEKS (1000MG)
     Route: 042
     Dates: start: 20230316
  14. INFLECTRA [Suspect]
     Active Substance: INFLIXIMAB-DYYB
     Dosage: 1000 MG (10 MG/KG), EVERY 6 WEEKS (15MG/KG)
     Route: 042
     Dates: start: 20230426
  15. INFLECTRA [Suspect]
     Active Substance: INFLIXIMAB-DYYB
     Dosage: 15 MG/KG, EVERY 4 WEEKS (ON 08JUN AND 4-6JUL)
     Route: 042
     Dates: start: 20230608
  16. INFLECTRA [Suspect]
     Active Substance: INFLIXIMAB-DYYB
     Dosage: 1140 MG (15 MG/KG), EVERY 4 WEEKS (3 WEEKS 5 DAYS AFTER LAST TREATMENT) (ON 08JUN AND 4-6JUL)
     Route: 042
     Dates: start: 20230704
  17. INFLECTRA [Suspect]
     Active Substance: INFLIXIMAB-DYYB
     Dosage: 15 MG/KG (1098 MG), EVERY 6 WEEKS (7 WEEKS AND 2 DAYS)
     Route: 042
     Dates: start: 20230824
  18. INFLECTRA [Suspect]
     Active Substance: INFLIXIMAB-DYYB
     Dosage: 15 MG/KG (1105 MG), EVERY 6 WEEKS (7 WEEKS AND 6 DAYS AFTER LAST TREATMENT)
     Route: 042
     Dates: start: 20231018
  19. INFLECTRA [Suspect]
     Active Substance: INFLIXIMAB-DYYB
     Dosage: 15 MG/KG (1000MG), EVERY 6 WEEKS (1000MG), (1080 MG, 8 WEEKS )
     Route: 042
     Dates: start: 20231213
  20. INFLECTRA [Suspect]
     Active Substance: INFLIXIMAB-DYYB
     Dosage: 1080 MG (15MG/KG, EVERY 6 WEEKS), 8 WEEKS
     Route: 042
     Dates: start: 20240207
  21. INFLECTRA [Suspect]
     Active Substance: INFLIXIMAB-DYYB
     Dosage: 1080 MG (15MG/KG, EVERY 6 WEEKS), 8 WEEKS
     Route: 042
     Dates: start: 20240207
  22. INFLECTRA [Suspect]
     Active Substance: INFLIXIMAB-DYYB
     Dosage: 1072 MG, 8 WEEKS
     Route: 042
     Dates: start: 20240403
  23. INFLECTRA [Suspect]
     Active Substance: INFLIXIMAB-DYYB
     Dosage: 1100 MG, EVERY 6 WEEK
     Route: 042
     Dates: start: 20240403, end: 20240403
  24. INFLECTRA [Suspect]
     Active Substance: INFLIXIMAB-DYYB
     Dosage: 1100 MG, EVERY 4 WEEKS
     Route: 042
     Dates: start: 20240503
  25. INFLECTRA [Suspect]
     Active Substance: INFLIXIMAB-DYYB
     Dosage: 1100 MG, EVERY 4 WEEKS
     Route: 042
     Dates: start: 20240529
  26. INFLECTRA [Suspect]
     Active Substance: INFLIXIMAB-DYYB
     Dosage: 1100 MG, EVERY 4 WEEKS
     Route: 042
     Dates: start: 20240626
  27. INFLECTRA [Suspect]
     Active Substance: INFLIXIMAB-DYYB
     Dosage: 1100 MG, EVERY 4 WEEKS
     Route: 042
     Dates: start: 20240724
  28. INFLECTRA [Suspect]
     Active Substance: INFLIXIMAB-DYYB
     Dosage: 1100 MG (15MG/KG), EVERY 4 WEEKS
     Route: 042
     Dates: start: 20240821
  29. HUMIRA [Concomitant]
     Active Substance: ADALIMUMAB
     Dosage: UNK
     Route: 065
  30. PREDNISONE [Concomitant]
     Active Substance: PREDNISONE
     Dosage: 10 MG
  31. PREDNISONE [Concomitant]
     Active Substance: PREDNISONE
     Dosage: 1 DF

REACTIONS (18)
  - Gait inability [Unknown]
  - Arthralgia [Recovered/Resolved]
  - Condition aggravated [Not Recovered/Not Resolved]
  - Drug specific antibody present [Unknown]
  - Drug level below therapeutic [Unknown]
  - Therapeutic response shortened [Unknown]
  - Weight increased [Not Recovered/Not Resolved]
  - Illness [Unknown]
  - Infusion site extravasation [Recovered/Resolved]
  - Faecal calprotectin increased [Not Recovered/Not Resolved]
  - Malaise [Unknown]
  - Blood pressure increased [Unknown]
  - Blood pressure systolic increased [Unknown]
  - Inappropriate schedule of product administration [Unknown]
  - Off label use [Unknown]
  - Off label use [Unknown]
  - Off label use [Unknown]
  - Intentional product use issue [Unknown]

NARRATIVE: CASE EVENT DATE: 20210101
